FAERS Safety Report 15066101 (Version 1)
Quarter: 2018Q2

REPORT INFORMATION
  Report Type: Spontaneous
  Country: IT (occurrence: IT)
  Receive Date: 20180626
  Receipt Date: 20180626
  Transmission Date: 20180711
  Serious: Yes (Other)
  Sender: FDA-Public Use
  Company Number: IT-AUROBINDO-AUR-APL-2018-032329

PATIENT
  Age: 62 Year
  Sex: Female

DRUGS (2)
  1. AMOXICILLIN. [Suspect]
     Active Substance: AMOXICILLIN
     Indication: IMPETIGO HERPETIFORMIS
     Dosage: 1 GRAM, DAILY
     Route: 048
  2. LIBRADIN                           /00338001/ [Concomitant]
     Indication: HYPERTENSION
     Route: 048

REACTIONS (4)
  - Erythema [Recovering/Resolving]
  - Toxic skin eruption [Recovering/Resolving]
  - Pruritus [Recovering/Resolving]
  - Injury [Recovering/Resolving]

NARRATIVE: CASE EVENT DATE: 20180521
